FAERS Safety Report 4645221-8 (Version None)
Quarter: 2005Q2

REPORT INFORMATION
  Report Type: 
  Country: None (occurrence: None)
  Receive Date: 20050426
  Receipt Date: 20050105
  Transmission Date: 20051028
  Serious: Yes (Hospitalization)
  Sender: FDA-Public Use
  Company Number: JP-GLAXOSMITHKLINE-B0364191A

PATIENT
  Age: 78 Year
  Sex: Male
  Weight: 45 kg

DRUGS (6)
  1. PAXIL [Suspect]
     Indication: DEPRESSION
     Dosage: 10MG PER DAY
     Route: 048
     Dates: start: 20040623, end: 20040628
  2. ENALAPRIL [Concomitant]
     Indication: HYPERTENSION
     Dosage: 5MG PER DAY
     Route: 048
  3. AMLODIPINE [Concomitant]
     Indication: HYPERTENSION
     Dosage: 5MG PER DAY
     Route: 048
  4. VERAPAMIL [Concomitant]
     Indication: ATRIAL FIBRILLATION
     Dosage: 39.99MG PER DAY
     Route: 048
     Dates: start: 20040701
  5. SELOKEN [Concomitant]
     Indication: ATRIAL FIBRILLATION
     Dosage: 20.01MG PER DAY
     Route: 048
     Dates: start: 20040701
  6. QUETIAPINE FUMARATE [Concomitant]
     Indication: SCHIZOPHRENIA
     Dosage: 25MG PER DAY
     Route: 048
     Dates: start: 20040601

REACTIONS (9)
  - ANOREXIA [None]
  - BLOOD CHLORIDE DECREASED [None]
  - DEPRESSED LEVEL OF CONSCIOUSNESS [None]
  - HYPONATRAEMIA [None]
  - INAPPROPRIATE ANTIDIURETIC HORMONE SECRETION [None]
  - PNEUMONIA [None]
  - RESPIRATORY FAILURE [None]
  - SOMNOLENCE [None]
  - VOMITING [None]
